FAERS Safety Report 22628755 (Version 1)
Quarter: 2023Q2

REPORT INFORMATION
  Report Type: Spontaneous
  Country: DE (occurrence: DE)
  Receive Date: 20230622
  Receipt Date: 20230622
  Transmission Date: 20230722
  Serious: Yes (Other)
  Sender: FDA-Public Use
  Company Number: DE-BAYER-2023A086269

PATIENT
  Sex: Female

DRUGS (1)
  1. MOXIFLOXACIN HYDROCHLORIDE [Suspect]
     Active Substance: MOXIFLOXACIN HYDROCHLORIDE
     Indication: Pneumonia
     Dosage: 1 INFUSION, QD
     Route: 042
     Dates: start: 20230614, end: 20230616

REACTIONS (3)
  - Arrhythmia [Not Recovered/Not Resolved]
  - Contraindicated product administered [None]
  - Product monitoring error [None]

NARRATIVE: CASE EVENT DATE: 20230614
